FAERS Safety Report 7594774-9 (Version None)
Quarter: 2011Q2

REPORT INFORMATION
  Report Type: 
  Country: None (occurrence: None)
  Receive Date: 20110614
  Receipt Date: 20101014
  Transmission Date: 20111010
  Serious: Yes (Other)
  Sender: FDA-Public Use
  Company Number: WWISSUE-514

PATIENT
  Sex: Female

DRUGS (1)
  1. CIPROFLOXACIN [Suspect]
     Indication: URINARY TRACT INFECTION
     Dosage: 250 MG
     Dates: start: 20100902

REACTIONS (3)
  - OEDEMA PERIPHERAL [None]
  - HYPOAESTHESIA [None]
  - PAIN [None]
